FAERS Safety Report 19351530 (Version 1)
Quarter: 2021Q2

REPORT INFORMATION
  Report Type: Spontaneous
  Country: US (occurrence: US)
  Receive Date: 20210531
  Receipt Date: 20210531
  Transmission Date: 20210717
  Serious: Yes (Congenital Anomaly)
  Sender: FDA-Public Use
  Company Number: US-JNJFOC-20210553125

PATIENT
  Age: 0 Day
  Sex: Male
  Weight: 2.29 kg

DRUGS (10)
  1. BENADRYL [Concomitant]
     Active Substance: DIPHENHYDRAMINE HYDROCHLORIDE
     Indication: NASOPHARYNGITIS
     Route: 064
     Dates: start: 20180501, end: 20180530
  2. FLONASE ALLERGY RELIEF [Concomitant]
     Active Substance: FLUTICASONE PROPIONATE
     Indication: NASOPHARYNGITIS
     Route: 064
     Dates: start: 20180515, end: 20180517
  3. PRENATAL VITAMINS [ASCORBIC ACID;BIOTIN;MINERALS NOS;NICOTINIC ACID;RE [Concomitant]
     Route: 064
     Dates: start: 20150115, end: 20180630
  4. SYNTHROID [Concomitant]
     Active Substance: LEVOTHYROXINE SODIUM
     Indication: HYPOTHYROIDISM
     Route: 064
     Dates: start: 20170923, end: 20180630
  5. TYLENOL [Concomitant]
     Active Substance: ACETAMINOPHEN
     Indication: PAIN
     Route: 064
     Dates: start: 20170923, end: 20180630
  6. PROGESTERONE. [Concomitant]
     Active Substance: PROGESTERONE
     Route: 064
     Dates: start: 20171026, end: 20171220
  7. STELARA [Suspect]
     Active Substance: USTEKINUMAB
     Indication: CROHN^S DISEASE
     Route: 064
  8. DHA CAL [Concomitant]
     Route: 064
     Dates: start: 20150115, end: 20180630
  9. MAGNESIUM [Concomitant]
     Active Substance: MAGNESIUM
     Indication: SLEEP DISORDER
     Route: 064
     Dates: start: 20170923, end: 20180630
  10. VITAMIN D [ERGOCALCIFEROL] [Concomitant]
     Active Substance: ERGOCALCIFEROL
     Route: 064
     Dates: start: 20170923, end: 20180630

REACTIONS (2)
  - Foetal exposure during pregnancy [Recovered/Resolved]
  - Hydrocele [Unknown]

NARRATIVE: CASE EVENT DATE: 20180630
